FAERS Safety Report 12981835 (Version 1)
Quarter: 2016Q4

REPORT INFORMATION
  Report Type: Spontaneous
  Country: US (occurrence: US)
  Receive Date: 20161128
  Receipt Date: 20161128
  Transmission Date: 20170207
  Serious: No
  Sender: FDA-Public Use
  Company Number: None

PATIENT
  Age: 71 Year
  Sex: Female

DRUGS (1)
  1. GLEEVEC [Suspect]
     Active Substance: IMATINIB MESYLATE
     Indication: MYELOID LEUKAEMIA
     Dosage: 200MG IN AM AND 100MG IN PM BID PO
     Route: 048
     Dates: start: 20160811

REACTIONS (1)
  - Muscular weakness [None]

NARRATIVE: CASE EVENT DATE: 20161022
